FAERS Safety Report 5711853-9 (Version None)
Quarter: 2008Q2

REPORT INFORMATION
  Report Type: 
  Country: None (occurrence: None)
  Receive Date: 20080421
  Receipt Date: 20080325
  Transmission Date: 20081010
  Serious: No
  Sender: FDA-Public Use
  Company Number: US-BOEHRINGER INGELHEIM GMBH, GERMANY-2007-BP-24880BP

PATIENT
  Sex: Female

DRUGS (14)
  1. SPIRIVA [Suspect]
     Indication: CHRONIC OBSTRUCTIVE PULMONARY DISEASE
     Route: 055
     Dates: start: 20060101
  2. SPIRIVA [Suspect]
     Indication: BRONCHITIS CHRONIC
  3. SPIRIVA [Suspect]
     Indication: EMPHYSEMA
  4. ASPIRIN [Concomitant]
  5. CALTRATE [Concomitant]
  6. TOPROL-XL [Concomitant]
  7. COZAAR [Concomitant]
  8. LASIX [Concomitant]
  9. EVISTA [Concomitant]
  10. ACIPHEX [Concomitant]
  11. NORFLEX [Concomitant]
  12. BONIVA [Concomitant]
  13. TYLENOL [Concomitant]
  14. ALEVE [Concomitant]

REACTIONS (4)
  - DRY MOUTH [None]
  - DRY THROAT [None]
  - DYSPHAGIA [None]
  - NASAL DRYNESS [None]
